FAERS Safety Report 9929846 (Version 1)
Quarter: 2014Q1

REPORT INFORMATION
  Report Type: Report from Study
  Country: US (occurrence: US)
  Receive Date: 20140227
  Receipt Date: 20140227
  Transmission Date: 20141002
  Serious: No
  Sender: FDA-Public Use
  Company Number: US-ABBVIE-13P-163-1098523-00

PATIENT
  Age: 58 Year
  Sex: Female

DRUGS (13)
  1. HUMIRA [Suspect]
     Indication: PSORIASIS
     Dates: start: 2007
  2. HUMIRA [Suspect]
     Dates: start: 2012
  3. HUMIRA [Suspect]
  4. TENORMIN [Concomitant]
     Indication: MITRAL VALVE PROLAPSE
     Dates: start: 2002
  5. TENORMIN [Concomitant]
     Indication: VENTRICULAR EXTRASYSTOLES
  6. PROZAC [Concomitant]
     Indication: DEPRESSION
     Dates: start: 2002
  7. LIPITOR [Concomitant]
     Indication: BLOOD CHOLESTEROL INCREASED
  8. VITAMINS NOS [Concomitant]
     Indication: PRODUCT USED FOR UNKNOWN INDICATION
  9. CALCIUM [Concomitant]
     Indication: PRODUCT USED FOR UNKNOWN INDICATION
  10. BABY ASPIRIN [Concomitant]
     Indication: PRODUCT USED FOR UNKNOWN INDICATION
     Dosage: 1, BUT NOT EVERYDAY
  11. PERCODAN [Concomitant]
     Indication: PAIN
  12. METHOTREXATE [Concomitant]
     Indication: PSORIASIS
  13. FOLIC ACID [Concomitant]
     Indication: PRODUCT USED FOR UNKNOWN INDICATION

REACTIONS (4)
  - White blood cell count decreased [Not Recovered/Not Resolved]
  - Injection site pain [Not Recovered/Not Resolved]
  - Psoriasis [Not Recovered/Not Resolved]
  - Red blood cell count decreased [Not Recovered/Not Resolved]
